FAERS Safety Report 16051735 (Version 1)
Quarter: 2019Q1

REPORT INFORMATION
  Report Type: Spontaneous
  Country: IT (occurrence: IT)
  Receive Date: 20190308
  Receipt Date: 20190308
  Transmission Date: 20190418
  Serious: Yes (Hospitalization)
  Sender: FDA-Public Use
  Company Number: IT-ASTRAZENECA-2019SE35350

PATIENT
  Age: 78 Year
  Sex: Female

DRUGS (8)
  1. METFORMIN HYDROCHLORIDE. [Concomitant]
     Active Substance: METFORMIN HYDROCHLORIDE
     Dosage: 1000.0MG UNKNOWN
     Route: 048
  2. BRILIQUE [Suspect]
     Active Substance: TICAGRELOR
     Indication: CORONARY ARTERY DISEASE
     Route: 048
     Dates: start: 20181025, end: 20190213
  3. PANTOPRAZOLE SODIUM. [Concomitant]
     Active Substance: PANTOPRAZOLE SODIUM
     Dosage: 20.0MG UNKNOWN
     Route: 048
  4. CARDIOASPIRIN [Suspect]
     Active Substance: ASPIRIN
     Indication: CORONARY ARTERY DISEASE
     Route: 048
     Dates: start: 20181025, end: 20190213
  5. ALLOPURINOL. [Concomitant]
     Active Substance: ALLOPURINOL
     Dosage: 150.0MG UNKNOWN
     Route: 048
  6. LASITONE [Concomitant]
     Active Substance: FUROSEMIDE\SPIRONOLACTONE
     Dosage: 25 MG + 37 MG, 1 DF
     Route: 048
  7. INEGY [Concomitant]
     Active Substance: EZETIMIBE\SIMVASTATIN
     Dosage: 10 MG/20 MG, 1 DF
     Route: 048
  8. BISOPROLOL HEMIFUMARATE [Concomitant]
     Active Substance: BISOPROLOL FUMARATE
     Dosage: 1.25MG UNKNOWN
     Route: 048

REACTIONS (1)
  - Anaemia [Recovered/Resolved]

NARRATIVE: CASE EVENT DATE: 20190208
